FAERS Safety Report 8161221-8 (Version None)
Quarter: 2012Q1

REPORT INFORMATION
  Report Type: 
  Country: None (occurrence: None)
  Receive Date: 20120103
  Receipt Date: 20111006
  Transmission Date: 20120608
  Serious: No
  Sender: FDA-Public Use
  Company Number: AE-2011-002110

PATIENT
  Age: 56 Year
  Sex: Male
  Weight: 72.5755 kg

DRUGS (4)
  1. PEGASYS [Concomitant]
  2. CELEBREX [Concomitant]
  3. RIBAVIRIN [Concomitant]
  4. INCIVEK [Suspect]
     Dosage: 2250 MG (750 MG, 1 IN 8 HR), ORAL
     Route: 048
     Dates: start: 20110916

REACTIONS (6)
  - DIZZINESS POSTURAL [None]
  - DYSPNOEA [None]
  - RASH MACULAR [None]
  - BURNING SENSATION [None]
  - CHEST DISCOMFORT [None]
  - PRURITUS [None]
